FAERS Safety Report 4976163-6 (Version None)
Quarter: 2006Q2

REPORT INFORMATION
  Report Type: 
  Country: None (occurrence: None)
  Receive Date: 20060410
  Receipt Date: 20060403
  Transmission Date: 20061013
  Serious: Yes (Death, Life-Threatening)
  Sender: FDA-Public Use
  Company Number: HQWYE237006JAN06

PATIENT
  Age: 71 Year
  Sex: Male

DRUGS (23)
  1. MYLOTARG [Suspect]
     Indication: ACUTE MYELOID LEUKAEMIA
     Dosage: 9 MG/M^2 1X PER 1 DAY, INTRAVENOUS DRIP
     Route: 041
     Dates: start: 20051110, end: 20051110
  2. MYLOTARG [Suspect]
     Indication: ACUTE MYELOID LEUKAEMIA
     Dosage: 9 MG/M^2 1X PER 1 DAY, INTRAVENOUS DRIP
     Route: 041
     Dates: start: 20051125, end: 20051125
  3. 6-MERCAPTOURINE (MERCAPTOPURINE, TABLET) [Suspect]
     Indication: ACUTE MYELOID LEUKAEMIA
     Dosage: SEE IMAGE, ORAL
     Route: 048
     Dates: start: 20050928, end: 20051004
  4. 6-MERCAPTOURINE (MERCAPTOPURINE, TABLET) [Suspect]
     Indication: ACUTE MYELOID LEUKAEMIA
     Dosage: SEE IMAGE, ORAL
     Route: 048
     Dates: start: 20051205, end: 20051219
  5. CYTARABINE [Suspect]
     Indication: ACUTE MYELOID LEUKAEMIA
     Dosage: 100 MG/DAILY
     Dates: start: 20051017, end: 20051108
  6. RANIMUSTINE (RANIMUSTINE, [Suspect]
     Indication: ACUTE MYELOID LEUKAEMIA
     Dosage: 100 MG/DAILY
     Dates: start: 20051003, end: 20051003
  7. RANIMUSTINE (RANIMUSTINE, [Suspect]
     Indication: ACUTE MYELOID LEUKAEMIA
     Dosage: 100 MG/DAILY
     Dates: start: 20051017, end: 20051017
  8. RANIMUSTINE (RANIMUSTINE, [Suspect]
     Indication: ACUTE MYELOID LEUKAEMIA
     Dosage: 100 MG/DAILY
     Dates: start: 20051028, end: 20051028
  9. ADETPHOS (ADENOSINE TRIPHOSPHATE, DISODIUM SALT) [Concomitant]
  10. METHYCOBAL (MECOBALAMIN) [Concomitant]
  11. GOSHAJINKIGAN (HERBAL EXTRACTS NOS) [Concomitant]
  12. MEDICON (DEXTROMETHORPHAN HYDROBROMIDE) [Concomitant]
  13. SULFAMETHOXAZOLE + TRIMETHOPRIM [Concomitant]
  14. DIFLUCAN [Concomitant]
  15. MUCOSTA (REBAMIPIDE) [Concomitant]
  16. STOGAR (LAFUTIDINE) [Concomitant]
  17. GLYBURIDE [Concomitant]
  18. OXYCONTIN [Concomitant]
  19. NAUZELIN (DOMPERIDONE) [Concomitant]
  20. SOSEGON (PENTAZOCINE) [Concomitant]
  21. ADONA (CARBAZOCHROME SODIUM SULFONATE) [Concomitant]
  22. MAXIPIME [Concomitant]
  23. FUNGUARD (MICAFUNGIN SODIUM) [Concomitant]

REACTIONS (14)
  - ALANINE AMINOTRANSFERASE INCREASED [None]
  - ASPARTATE AMINOTRANSFERASE INCREASED [None]
  - BLOOD BILIRUBIN INCREASED [None]
  - BLOOD LACTATE DEHYDROGENASE INCREASED [None]
  - CEREBRAL HAEMORRHAGE [None]
  - CONDITION AGGRAVATED [None]
  - FEBRILE NEUTROPENIA [None]
  - GLUCOSE URINE PRESENT [None]
  - HEPATIC FUNCTION ABNORMAL [None]
  - HYPERTENSION [None]
  - LEUKAEMIC INFILTRATION HEPATIC [None]
  - PLATELET COUNT DECREASED [None]
  - PNEUMONIA [None]
  - VOMITING [None]
